FAERS Safety Report 12741241 (Version 5)
Quarter: 2016Q4

REPORT INFORMATION
  Report Type: Spontaneous
  Country: IT (occurrence: IT)
  Receive Date: 20160914
  Receipt Date: 20161105
  Transmission Date: 20170207
  Serious: Yes (Other)
  Sender: FDA-Public Use
  Company Number: IT-ACCORD-042744

PATIENT
  Age: 68 Year
  Sex: Female
  Weight: 57 kg

DRUGS (2)
  1. OXALIPLATIN SUN [Suspect]
     Active Substance: OXALIPLATIN
     Indication: COLON CANCER
     Dosage: DOSE WAS REDUCED TO 20% ON 26-JUL-2016?ALSO RECEIVED 126 MG CYCLICAL FROM 31-MAY-2016 TO 26-JUL-201
     Route: 042
     Dates: start: 20160531
  2. FLUOROURACIL. [Suspect]
     Active Substance: FLUOROURACIL
     Indication: COLON CANCER
     Dosage: DOSE WAS REDUCED TO 20% ON 26-JUL-2016
     Route: 040
     Dates: start: 20160531

REACTIONS (2)
  - Neutropenia [Recovered/Resolved]
  - Paraesthesia [Recovered/Resolved]

NARRATIVE: CASE EVENT DATE: 20160705
